FAERS Safety Report 9261781 (Version 3)
Quarter: 2013Q2

REPORT INFORMATION
  Report Type: Spontaneous
  Country: US (occurrence: US)
  Receive Date: 20130429
  Receipt Date: 20130508
  Transmission Date: 20140414
  Serious: Yes (Hospitalization, Other)
  Sender: FDA-Public Use
  Company Number: US-BAXTER-2013BAX015204

PATIENT
  Age: 79 Year
  Sex: Female

DRUGS (2)
  1. DIANEAL LOW CALCIUM [Suspect]
     Indication: PERITONEAL DIALYSIS
     Route: 033
  2. DIANEAL LOW CALCIUM (ULTRABAG) [Suspect]
     Indication: PERITONEAL DIALYSIS
     Route: 033

REACTIONS (9)
  - Dizziness [Recovering/Resolving]
  - Asthenia [Recovering/Resolving]
  - Diverticulitis [Recovering/Resolving]
  - Fall [Recovering/Resolving]
  - Vomiting [Recovering/Resolving]
  - Diarrhoea [Recovering/Resolving]
  - Pyrexia [Not Recovered/Not Resolved]
  - Abdominal pain [Recovering/Resolving]
  - Hypotension [Not Recovered/Not Resolved]
